FAERS Safety Report 5225611-5 (Version None)
Quarter: 2007Q1

REPORT INFORMATION
  Report Type: 
  Country: None (occurrence: None)
  Receive Date: 20061201
  Receipt Date: 20060830
  Transmission Date: 20070707
  Serious: Yes (Other)
  Sender: FDA-Public Use
  Company Number: US200608006908

PATIENT
  Age: 73 Year
  Sex: Male

DRUGS (3)
  1. CYMBALTA [Suspect]
     Indication: NEURALGIA
     Dates: start: 20050101
  2. SYNTHROID [Concomitant]
  3. METFORMIN HCL [Concomitant]

REACTIONS (3)
  - LYMPHADENOPATHY [None]
  - MEDIASTINAL DISORDER [None]
  - THROMBOCYTOPENIA [None]
